FAERS Safety Report 5760045-6 (Version None)
Quarter: 2008Q2

REPORT INFORMATION
  Report Type: 
  Country: None (occurrence: None)
  Receive Date: 20080605
  Receipt Date: 20080529
  Transmission Date: 20081010
  Serious: Yes (Hospitalization)
  Sender: FDA-Public Use
  Company Number: ES-ABBOTT-08P-144-0453977-00

PATIENT
  Age: 25 Year
  Sex: Female

DRUGS (4)
  1. HUMIRA [Suspect]
     Indication: CROHN'S DISEASE
     Route: 058
     Dates: start: 20080513
  2. AZATHIOPRINE [Concomitant]
     Indication: CROHN'S DISEASE
  3. PREDNISONE TAB [Concomitant]
     Indication: CROHN'S DISEASE
  4. FEMODENE [Concomitant]
     Indication: AMENORRHOEA

REACTIONS (3)
  - DIARRHOEA [None]
  - INJECTION SITE ERYTHEMA [None]
  - PAIN [None]
